FAERS Safety Report 8240384-X (Version None)
Quarter: 2012Q1

REPORT INFORMATION
  Report Type: 
  Country: None (occurrence: None)
  Receive Date: 20120328
  Receipt Date: 20120323
  Transmission Date: 20120608
  Serious: Yes (Other)
  Sender: FDA-Public Use
  Company Number: US-PFIZER INC-2012076098

PATIENT
  Sex: Male
  Weight: 147.39 kg

DRUGS (7)
  1. OMEPRAZOLE [Concomitant]
     Indication: DYSPEPSIA
     Dosage: 20 MG, 1X/DAY
  2. PRAVASTATIN [Concomitant]
     Indication: BLOOD CHOLESTEROL INCREASED
     Dosage: UNK
  3. NOVOLOG [Concomitant]
     Dosage: UNKNOWN DOSAGE, 3X/DAY
  4. LISINOPRIL [Concomitant]
     Indication: HYPERTENSION
     Dosage: UNK
  5. LANTUS [Concomitant]
     Dosage: UNKNOWN DOSAGE, 1X/DAY
  6. LYRICA [Suspect]
     Indication: DIABETIC NEUROPATHY
     Dosage: 200 MG, 3X/DAY
     Route: 048
     Dates: start: 20120321
  7. VERAPAMIL [Concomitant]
     Indication: HYPERTENSION
     Dosage: UNK

REACTIONS (3)
  - BURNING SENSATION [None]
  - DRUG INEFFECTIVE [None]
  - ACTIVITIES OF DAILY LIVING IMPAIRED [None]
